FAERS Safety Report 20908584 (Version 1)
Quarter: 2022Q2

REPORT INFORMATION
  Report Type: Spontaneous
  Country: DE (occurrence: DE)
  Receive Date: 20220603
  Receipt Date: 20220603
  Transmission Date: 20220721
  Serious: Yes (Hospitalization)
  Sender: FDA-Public Use
  Company Number: DE-DCGMA-22198217

PATIENT
  Age: 10 Year
  Sex: Male
  Weight: 37 kg

DRUGS (1)
  1. METOCLOPRAMIDE [Suspect]
     Active Substance: METOCLOPRAMIDE
     Indication: Nausea
     Dosage: 30 MILLIGRAM DAILY; UNIT DOSE : 30 MG, FREQUENCY TIME : 1 DAYS, THERAPY DURATION : 2 DAYS
     Route: 048
     Dates: start: 20220426, end: 20220427

REACTIONS (5)
  - Musculoskeletal stiffness [Unknown]
  - Paraesthesia oral [Unknown]
  - Opisthotonus [Unknown]
  - Dysarthria [Unknown]
  - Lagophthalmos [Unknown]

NARRATIVE: CASE EVENT DATE: 20220427
